FAERS Safety Report 6373966-0 (Version None)
Quarter: 2009Q3

REPORT INFORMATION
  Report Type: 
  Country: None (occurrence: None)
  Receive Date: 20090924
  Receipt Date: 20090914
  Transmission Date: 20100115
  Serious: Yes (Other)
  Sender: FDA-Public Use
  Company Number: US-ALEXION-A200900204

PATIENT
  Sex: Female

DRUGS (6)
  1. SOLIRIS [Suspect]
     Indication: PAROXYSMAL NOCTURNAL HAEMOGLOBINURIA
     Dosage: 600 MG, QW
     Route: 042
     Dates: start: 20080507, end: 20080528
  2. SOLIRIS [Suspect]
     Dosage: 900 MG, Q2W
     Route: 042
     Dates: start: 20080604, end: 20090311
  3. SOLIRIS [Suspect]
     Dosage: UNK
     Route: 042
     Dates: start: 20090903, end: 20090903
  4. PREDNISONE [Concomitant]
     Indication: PAROXYSMAL NOCTURNAL HAEMOGLOBINURIA
     Dosage: 10 MG, QD
     Route: 048
  5. VITAMIN B12                        /00056201/ [Concomitant]
     Dosage: UNK, QMONTH
  6. PROTONIX                           /01263201/ [Concomitant]
     Dosage: UNK
     Route: 048

REACTIONS (2)
  - ABORTION [None]
  - PREGNANCY [None]
